FAERS Safety Report 7821715-9 (Version None)
Quarter: 2011Q4

REPORT INFORMATION
  Report Type: 
  Country: None (occurrence: None)
  Receive Date: 20111018
  Receipt Date: 20110502
  Transmission Date: 20120403
  Serious: No
  Sender: FDA-Public Use
  Company Number: US-ASTRAZENECA-2011SE25325

PATIENT
  Age: 86 Year
  Sex: Male
  Weight: 83.9 kg

DRUGS (10)
  1. SINGULAIR [Concomitant]
  2. SYMBICORT [Suspect]
     Dosage: 160/4.5,1 PUFF,TWO TIMES A DAY
     Route: 055
     Dates: start: 20110301
  3. LORATADINE [Concomitant]
  4. WARFARIN SODIUM [Concomitant]
  5. METOPROLOL TARTRATE [Concomitant]
  6. CRESTOR [Concomitant]
  7. HYDROCHLOROTHIAZIDE [Concomitant]
  8. LISINOPRIL [Concomitant]
  9. SYMBICORT [Suspect]
     Dosage: 80/4.5,2 PUFFS, TWO TIMES A DAY
     Route: 055
  10. PAXIL [Concomitant]

REACTIONS (2)
  - PROSTATIC SPECIFIC ANTIGEN INCREASED [None]
  - DYSPHONIA [None]
